FAERS Safety Report 15802894 (Version 1)
Quarter: 2019Q1

REPORT INFORMATION
  Report Type: Spontaneous
  Country: US (occurrence: US)
  Receive Date: 20190109
  Receipt Date: 20190109
  Transmission Date: 20190417
  Serious: Yes (Other)
  Sender: FDA-Public Use
  Company Number: US-PFIZER INC-2019004916

PATIENT
  Sex: Male

DRUGS (1)
  1. LYRICA [Suspect]
     Active Substance: PREGABALIN
     Indication: NEURALGIA
     Dosage: UNK UNK, AS NEEDED (HE TOOK IT AS NEEDED, HE WAS PRESCRIBED 3 TIMES DAILY)

REACTIONS (2)
  - Intentional product misuse [Unknown]
  - Multiple sclerosis [Unknown]
